FAERS Safety Report 4957807-1 (Version None)
Quarter: 2006Q1

REPORT INFORMATION
  Report Type: 
  Country: None (occurrence: None)
  Receive Date: 20060324
  Receipt Date: 20060310
  Transmission Date: 20060701
  Serious: Yes (Other)
  Sender: FDA-Public Use
  Company Number: DE-2006-005416

PATIENT
  Sex: Female

DRUGS (1)
  1. BETAFERON [Suspect]
     Dosage: SUBCUTANEOUS
     Route: 058
     Dates: start: 20051101, end: 20060201

REACTIONS (2)
  - ALOPECIA [None]
  - AUTOIMMUNE HEPATITIS [None]
